FAERS Safety Report 5973158-0 (Version None)
Quarter: 2008Q4

REPORT INFORMATION
  Report Type: 
  Country: None (occurrence: None)
  Receive Date: 20081201
  Receipt Date: 20081118
  Transmission Date: 20090506
  Serious: Yes (Life-Threatening, Hospitalization)
  Sender: FDA-Public Use
  Company Number: JP-ASTRAZENECA-2008SE05116

PATIENT
  Age: 86 Year
  Sex: Male
  Weight: 56 kg

DRUGS (17)
  1. BLOPRESS [Suspect]
     Indication: CARDIAC FAILURE CHRONIC
     Route: 048
     Dates: start: 20070601, end: 20080608
  2. BLOPRESS [Suspect]
     Route: 048
     Dates: start: 20070609, end: 20080701
  3. LANIRAPID [Concomitant]
     Indication: CARDIAC FAILURE CHRONIC
     Route: 048
     Dates: start: 20070202, end: 20070601
  4. LANIRAPID [Concomitant]
     Route: 048
     Dates: start: 20080419, end: 20080617
  5. LASIX [Concomitant]
     Indication: CARDIAC FAILURE CHRONIC
     Route: 048
     Dates: start: 20071124, end: 20080416
  6. NITOROL R [Concomitant]
     Indication: ANGINA PECTORIS
     Route: 048
  7. MEXITIL [Concomitant]
     Indication: ARRHYTHMIA
     Route: 048
     Dates: end: 20080701
  8. NIVADIL [Concomitant]
     Indication: HYPERTENSION
     Route: 048
     Dates: start: 20070227, end: 20070608
  9. NATRIX [Concomitant]
     Indication: HYPERTENSION
     Route: 048
     Dates: start: 20060915, end: 20070608
  10. MAINTATE [Concomitant]
     Indication: HYPERTENSION
     Route: 048
     Dates: start: 20070227, end: 20080617
  11. MAINTATE [Concomitant]
     Route: 048
     Dates: start: 20080618, end: 20080817
  12. PAXIL [Concomitant]
     Indication: DEPRESSION
     Route: 048
     Dates: start: 20070525
  13. HALCION [Concomitant]
     Indication: INSOMNIA
     Route: 048
     Dates: start: 20050318
  14. ROHYPNOL [Concomitant]
     Indication: INSOMNIA
     Route: 048
     Dates: start: 20030325
  15. WARFARIN SODIUM [Concomitant]
     Indication: ATRIAL FIBRILLATION
     Route: 048
  16. SELARA [Concomitant]
     Indication: HYPERTENSION
     Route: 048
     Dates: start: 20080512, end: 20080701
  17. DIART [Concomitant]
     Indication: CARDIAC FAILURE CHRONIC
     Route: 048
     Dates: start: 20080216, end: 20080817

REACTIONS (3)
  - CARDIAC FAILURE [None]
  - NEPHROGENIC ANAEMIA [None]
  - RENAL FAILURE [None]
